FAERS Safety Report 7423314-X (Version None)
Quarter: 2011Q2

REPORT INFORMATION
  Report Type: 
  Country: None (occurrence: None)
  Receive Date: 20110419
  Receipt Date: 20110406
  Transmission Date: 20111010
  Serious: Yes (Other)
  Sender: FDA-Public Use
  Company Number: US-ROCHE-770344

PATIENT
  Age: 56 Year
  Sex: Male
  Weight: 79 kg

DRUGS (5)
  1. BEVACIZUMAB [Suspect]
     Indication: PROSTATE CANCER
     Dosage: OVER 30-90 MINUTES ON DAY 1, CYCLE: 21 DAYS, LAST DOSE: 21 JUNE 2010, CYCLE 8 DAY 1
     Route: 042
     Dates: start: 20091222
  2. DOCETAXEL [Suspect]
     Indication: PROSTATE CANCER
     Dosage: OVER 60 MINUTES ON DAY 1, LAST DOSE: 27 JUNE 2010, CYCLE 8 DAY 1
     Route: 042
     Dates: start: 20091222
  3. ZOLEDRONIC ACID [Concomitant]
  4. LENALIDOMIDE [Suspect]
     Indication: PROSTATE CANCER
     Dosage: DAY 14, LAST DOSE: 21 JUNE 2010, CYCLE 8 DAY 14
     Route: 048
     Dates: start: 20091222
  5. PREDNISONE [Suspect]
     Indication: PROSTATE CANCER
     Dosage: LAST DOSE: 27 JUNE 2010, CYCLE 8 DAY 21
     Route: 048
     Dates: start: 20091222

REACTIONS (1)
  - OSTEONECROSIS [None]
